FAERS Safety Report 6383090-9 (Version None)
Quarter: 2009Q3

REPORT INFORMATION
  Report Type: 
  Country: None (occurrence: None)
  Receive Date: 20090928
  Receipt Date: 20090916
  Transmission Date: 20100115
  Serious: Yes (Other)
  Sender: FDA-Public Use
  Company Number: 340001J09USA

PATIENT
  Age: 25 Year
  Sex: Female

DRUGS (5)
  1. OVIDREL (CHORIOGONADOTROPIN ALFA FOR INJECTION) [Suspect]
     Indication: INFERTILITY
     Dosage: 250 G, 1 IN 1 MONTHS,; 250 G, 1 IN 1 MIN,
     Dates: start: 20080101, end: 20080101
  2. OVIDREL (CHORIOGONADOTROPIN ALFA FOR INJECTION) [Suspect]
     Indication: INFERTILITY
     Dosage: 250 G, 1 IN 1 MONTHS,; 250 G, 1 IN 1 MIN,
     Dates: start: 20090901
  3. FEMARA [Suspect]
  4. METFORMIN HCL [Concomitant]
  5. UNSPECIFIED MEDICATION  (ALL OTHER THERAPEUTIC PRODUCTS) [Concomitant]

REACTIONS (1)
  - ECTOPIC PREGNANCY [None]
